FAERS Safety Report 18841976 (Version 2)
Quarter: 2021Q1

REPORT INFORMATION
  Report Type: Spontaneous
  Country: US (occurrence: US)
  Receive Date: 20210204
  Receipt Date: 20210305
  Transmission Date: 20210419
  Serious: Yes (Other)
  Sender: FDA-Public Use
  Company Number: US-009507513-2102USA001157

PATIENT
  Sex: Male

DRUGS (1)
  1. KEYTRUDA [Suspect]
     Active Substance: PEMBROLIZUMAB
     Indication: SQUAMOUS CELL CARCINOMA OF HEAD AND NECK
     Dosage: 200 MILLIGRAM, Q3W
     Route: 042

REACTIONS (4)
  - Adrenalitis [Unknown]
  - Inappropriate antidiuretic hormone secretion [Unknown]
  - Blood sodium decreased [Unknown]
  - Hypophysitis [Unknown]

NARRATIVE: CASE EVENT DATE: 20210129
